FAERS Safety Report 16444087 (Version 1)
Quarter: 2019Q2

REPORT INFORMATION
  Report Type: Spontaneous
  Country: GB (occurrence: GB)
  Receive Date: 20190618
  Receipt Date: 20190618
  Transmission Date: 20190711
  Serious: Yes (Other)
  Sender: FDA-Public Use
  Company Number: GB-ACCORD-133387

PATIENT
  Age: 86 Year
  Sex: Male
  Weight: 70 kg

DRUGS (17)
  1. LERCANIDIPINE [Concomitant]
     Active Substance: LERCANIDIPINE
     Dates: start: 20160811
  2. FUROSEMIDE. [Concomitant]
     Active Substance: FUROSEMIDE
     Dosage: MORNING
     Dates: start: 20190417
  3. LOSARTAN. [Concomitant]
     Active Substance: LOSARTAN
     Dates: start: 20160811
  4. ATORVASTATIN [Concomitant]
     Active Substance: ATORVASTATIN
     Dates: start: 20160811
  5. ATENOLOL/ATENOLOL HYDROCHLORIDE [Concomitant]
     Dates: start: 20160811
  6. FUROSEMIDE. [Suspect]
     Active Substance: FUROSEMIDE
     Indication: PRODUCT USED FOR UNKNOWN INDICATION
     Route: 051
     Dates: start: 20190425
  7. INDAPAMIDE. [Concomitant]
     Active Substance: INDAPAMIDE
     Dosage: MORNING
     Dates: start: 20160811
  8. BUPRENORPHINE. [Concomitant]
     Active Substance: BUPRENORPHINE
     Dosage: APPLY
     Dates: start: 20190417
  9. ACETYLSALICYLIC ACID [Concomitant]
     Active Substance: ASPIRIN
     Dates: start: 20160811
  10. FLUCLOXACILLIN [Concomitant]
     Active Substance: FLUCLOXACILLIN
     Dates: start: 20190305, end: 20190312
  11. CLOBETASOL [Concomitant]
     Active Substance: CLOBETASOL
     Dosage: APPLY 1-2 TIMES/DAY
     Route: 061
     Dates: start: 20190215, end: 20190315
  12. AQUEOUS CREAM [Concomitant]
     Dosage: APPLY
     Route: 061
     Dates: start: 20190425
  13. HYDROXYZINE [Concomitant]
     Active Substance: HYDROXYZINE HYDROCHLORIDE
     Dosage: PER NIGHT BEFORE BED
     Dates: start: 20190425
  14. MOXONIDINE [Concomitant]
     Active Substance: MOXONIDINE
     Dates: start: 20171109
  15. CO-AMOXICLAV [Concomitant]
     Active Substance: AMOXICILLIN\CLAVULANATE POTASSIUM
     Dates: start: 20190319, end: 20190402
  16. CETRABEN EMOLLIENT CREAM [Concomitant]
     Dosage: USE AS DIRECTED
     Dates: start: 20190215, end: 20190315
  17. FUCIBET [Concomitant]
     Dosage: APPLY
     Route: 061
     Dates: start: 20190319, end: 20190402

REACTIONS (3)
  - Purpura [Unknown]
  - Pruritus [Unknown]
  - Skin irritation [Unknown]

NARRATIVE: CASE EVENT DATE: 20190426
